FAERS Safety Report 7397450-0 (Version None)
Quarter: 2011Q1

REPORT INFORMATION
  Report Type: 
  Country: None (occurrence: None)
  Receive Date: 20110328
  Receipt Date: 20110321
  Transmission Date: 20110831
  Serious: Yes (Hospitalization, Other)
  Sender: FDA-Public Use
  Company Number: WAES 1103USA02616

PATIENT
  Age: 41 Year
  Sex: Female
  Weight: 54.4316 kg

DRUGS (10)
  1. FENTANYL [Concomitant]
  2. DECADRON [Suspect]
     Dosage: 2 MG, DAILY, PO
     Route: 048
  3. NEXIUM [Concomitant]
  4. CELEXA [Concomitant]
  5. BACTRIM [Concomitant]
  6. COLACE [Concomitant]
  7. ARIXTRA [Concomitant]
  8. KEPPRA [Concomitant]
  9. LANTUS [Concomitant]
  10. MEFORMIN [Concomitant]

REACTIONS (4)
  - SPINAL CORD COMPRESSION [None]
  - METASTASES TO CENTRAL NERVOUS SYSTEM [None]
  - LEUKOENCEPHALOPATHY [None]
  - ABSCESS [None]
